FAERS Safety Report 8875304 (Version 2)
Quarter: 2015Q1

REPORT INFORMATION
  Report Type: Report from Study
  Country: US (occurrence: US)
  Receive Date: 20121029
  Receipt Date: 20150327
  Transmission Date: 20150721
  Serious: Yes (Death)
  Sender: FDA-Public Use
  Company Number: US-ROCHE-CID000000002209230

PATIENT
  Sex: Female
  Weight: 63 kg

DRUGS (3)
  1. ZELBORAF [Suspect]
     Active Substance: VEMURAFENIB
     Indication: METASTASES TO LIVER
  2. ZELBORAF [Suspect]
     Active Substance: VEMURAFENIB
     Indication: MALIGNANT MELANOMA
     Dosage: DOSE APPROXIMATELY 12 HRS APART WITH GLASS OF WATER.
     Route: 048
     Dates: start: 20111220
  3. ZELBORAF [Suspect]
     Active Substance: VEMURAFENIB
     Indication: BONE CANCER

REACTIONS (1)
  - Disease progression [Fatal]
